FAERS Safety Report 4598326-4 (Version None)
Quarter: 2005Q2

REPORT INFORMATION
  Report Type: 
  Country: None (occurrence: None)
  Receive Date: 20050204
  Receipt Date: 20040713
  Transmission Date: 20051028
  Serious: Yes (Other)
  Sender: FDA-Public Use
  Company Number: PHEH2004US07504

PATIENT
  Age: 32 Year
  Sex: Male
  Weight: 142.9 kg

DRUGS (4)
  1. CLOZARIL [Suspect]
     Indication: SCHIZOPHRENIA
     Dosage: 400 MG/DAY, ORAL
     Route: 048
     Dates: start: 19930701
  2. ZIPRASIDONE (ZIPRASIDONE) [Concomitant]
  3. BUSPIRONE (BUSIPRONE) [Concomitant]
  4. FLUOXETINE [Concomitant]

REACTIONS (1)
  - DIABETES MELLITUS [None]
